FAERS Safety Report 9497753 (Version 2)
Quarter: 2013Q4

REPORT INFORMATION
  Report Type: Spontaneous
  Country: US (occurrence: US)
  Receive Date: 20130904
  Receipt Date: 20131106
  Transmission Date: 20140711
  Serious: No
  Sender: FDA-Public Use
  Company Number: US-AMGEN-USASP2013060982

PATIENT
  Age: 61 Year
  Sex: Male
  Weight: 99.77 kg

DRUGS (7)
  1. ENBREL [Suspect]
     Indication: PSORIASIS
     Dosage: 50 MG, QWK
     Route: 058
     Dates: start: 20130516
  2. HYZAAR [Concomitant]
     Dosage: 100-25, UNK
  3. LIPITOR [Concomitant]
     Dosage: 10 MG, UNK
  4. TRICOR                             /00499301/ [Concomitant]
     Dosage: 145 MG, UNK
  5. ASPIRIN [Concomitant]
     Dosage: 81 MG, UNK
  6. GLYBURIDE [Concomitant]
     Dosage: 1.25 MG, UNK
  7. JANUMET [Concomitant]
     Dosage: 50-1000, UNK

REACTIONS (3)
  - Diarrhoea [Recovered/Resolved]
  - Fatigue [Recovered/Resolved]
  - Gastroenteritis viral [Recovered/Resolved]
